FAERS Safety Report 7391739-7 (Version None)
Quarter: 2011Q2

REPORT INFORMATION
  Report Type: 
  Country: None (occurrence: None)
  Receive Date: 20110404
  Receipt Date: 20110329
  Transmission Date: 20111010
  Serious: Yes (Life-Threatening, Other)
  Sender: FDA-Public Use
  Company Number: FR-PFIZER INC-2011069354

PATIENT
  Age: 62 Year
  Sex: Male

DRUGS (10)
  1. SEROPLEX [Concomitant]
  2. ATENOLOL [Concomitant]
     Dosage: UNK
  3. ALDACTONE [Suspect]
     Dosage: 75 MG, UNK
     Route: 048
     Dates: end: 20110117
  4. NEXIUM [Concomitant]
  5. MEPRONIZINE [Concomitant]
  6. SIMVASTATIN [Concomitant]
  7. SERETIDE [Concomitant]
  8. SALBUTAMOL [Concomitant]
  9. SEVIKAR [Suspect]
     Dosage: 40 MG/10 MG
     Route: 048
     Dates: start: 20100101, end: 20110117
  10. IPRATROPIUM [Concomitant]

REACTIONS (3)
  - RENAL FAILURE ACUTE [None]
  - CARDIO-RESPIRATORY ARREST [None]
  - HYPERKALAEMIA [None]
